FAERS Safety Report 15088850 (Version 1)
Quarter: 2018Q2

REPORT INFORMATION
  Report Type: Spontaneous
  Country: US (occurrence: US)
  Receive Date: 20180629
  Receipt Date: 20180629
  Transmission Date: 20180711
  Serious: No
  Sender: FDA-Public Use
  Company Number: US-SA-2018SA147376

PATIENT

DRUGS (4)
  1. ALLEGRA ALLERGY [Suspect]
     Active Substance: FEXOFENADINE HYDROCHLORIDE
     Dosage: UNK, UNK
  2. FLONASE [FLUTICASONE PROPIONATE] [Concomitant]
  3. SUDAFED [XYLOMETAZOLINE HYDROCHLORIDE] [Concomitant]
  4. CLARITINE [Concomitant]
     Active Substance: LORATADINE

REACTIONS (2)
  - Dyspnoea [Unknown]
  - Eye pruritus [Unknown]
